FAERS Safety Report 10412266 (Version 1)
Quarter: 2014Q2

REPORT INFORMATION
  Report Type: Spontaneous
  Country: US (occurrence: None)
  Receive Date: 20140604
  Receipt Date: 20140604
  Transmission Date: 20141212
  Serious: Yes (Hospitalization)
  Sender: FDA-Public Use
  Company Number: 20100729CINRY1563

PATIENT
  Age: 18 Year
  Sex: Female

DRUGS (5)
  1. CINRYZE [Suspect]
     Indication: HEREDITARY ANGIOEDEMA
     Route: 042
     Dates: start: 20100401
  2. CINRYZE [Suspect]
     Indication: PROPHYLAXIS
     Route: 042
     Dates: start: 20100401
  3. CAMILA (NORETHISTERON) [Concomitant]
  4. SYMBICORT (BUDESONIDE W/FORMOTEROL FUMARATE) [Concomitant]
  5. UNSPECIFIED RESCUE INHALER [Concomitant]

REACTIONS (3)
  - Hereditary angioedema [None]
  - Angioedema [None]
  - Hereditary angioedema [None]
